FAERS Safety Report 17093006 (Version 1)
Quarter: 2019Q4

REPORT INFORMATION
  Report Type: Spontaneous
  Country: US (occurrence: US)
  Receive Date: 20191101
  Receipt Date: 20191101
  Transmission Date: 20200122
  Serious: Yes (Hospitalization)
  Sender: FDA-Public Use
  Company Number: None

PATIENT
  Age: 47 Year
  Sex: Male
  Weight: 71.2 kg

DRUGS (3)
  1. CISPLATIN (119875) [Suspect]
     Active Substance: CISPLATIN
     Dates: start: 20181010, end: 20181010
  2. IFOSFAMIDE. [Concomitant]
     Active Substance: IFOSFAMIDE
     Dates: start: 20181010, end: 20181014
  3. TAXOL [Concomitant]
     Active Substance: PACLITAXEL
     Dates: start: 20181010, end: 20181010

REACTIONS (7)
  - Arthritis infective [None]
  - Chills [None]
  - Upper-airway cough syndrome [None]
  - C-reactive protein increased [None]
  - Oropharyngeal pain [None]
  - White blood cell count decreased [None]
  - Parainfluenzae virus infection [None]

NARRATIVE: CASE EVENT DATE: 20181021
